FAERS Safety Report 8019917-4 (Version None)
Quarter: 2012Q1

REPORT INFORMATION
  Report Type: 
  Country: None (occurrence: None)
  Receive Date: 20120103
  Receipt Date: 20111230
  Transmission Date: 20120608
  Serious: Yes (Other)
  Sender: FDA-Public Use
  Company Number: US-GENZYME-THYM-1003062

PATIENT
  Sex: Female

DRUGS (4)
  1. THYMOGLOBULIN [Suspect]
     Dosage: 150 MG, QD
     Route: 042
     Dates: start: 20111218, end: 20111219
  2. THYMOGLOBULIN [Suspect]
     Indication: BONE MARROW CONDITIONING REGIMEN
     Dosage: 150 MG, QD
     Route: 042
     Dates: start: 20111215, end: 20111215
  3. MELPHALAN HYDROCHLORIDE [Concomitant]
     Indication: BONE MARROW CONDITIONING REGIMEN
  4. FLUDARABINE PHOSPHATE [Concomitant]
     Indication: BONE MARROW CONDITIONING REGIMEN
     Dosage: UNK

REACTIONS (4)
  - ISCHAEMIC HEPATITIS [None]
  - ATRIAL FIBRILLATION [None]
  - RENAL FAILURE ACUTE [None]
  - HYPOTENSION [None]
